FAERS Safety Report 6519873-1 (Version None)
Quarter: 2009Q4

REPORT INFORMATION
  Report Type: 
  Country: None (occurrence: None)
  Receive Date: 20091228
  Receipt Date: 20091228
  Transmission Date: 20100525
  Serious: No
  Sender: FDA-Public Use
  Company Number: None

PATIENT
  Age: 66 Year
  Sex: Male
  Weight: 97.8 kg

DRUGS (1)
  1. CIPROFLOXACIN [Suspect]
     Indication: CELLULITIS
     Dosage: 400 MG ONCE IV
     Route: 042
     Dates: start: 20090810, end: 20090810

REACTIONS (2)
  - ERYTHEMA MULTIFORME [None]
  - PRODUCTIVE COUGH [None]
